FAERS Safety Report 9808105 (Version 1)
Quarter: 2014Q1

REPORT INFORMATION
  Report Type: Spontaneous
  Country: DE (occurrence: None)
  Receive Date: 20140108
  Receipt Date: 20140108
  Transmission Date: 20141002
  Serious: Yes (Congenital Anomaly)
  Sender: FDA-Public Use
  Company Number: DE-DEXPHARM-20131187

PATIENT
  Age: 1 Day
  Sex: Male

DRUGS (5)
  1. NOVALGIN [Suspect]
     Indication: INTERVERTEBRAL DISC PROTRUSION
     Route: 064
  2. TILIDIN [Concomitant]
  3. TRAMADOL [Concomitant]
  4. DICLOFENAC [Suspect]
     Indication: INTERVERTEBRAL DISC PROTRUSION
     Route: 064
  5. IBUPROFEN [Suspect]
     Route: 064

REACTIONS (11)
  - Atrial septal defect [None]
  - Pulmonary artery stenosis congenital [None]
  - Neonatal respiratory distress syndrome [None]
  - Macrocephaly [None]
  - Maternal drugs affecting foetus [None]
  - Caesarean section [None]
  - Transverse presentation [None]
  - Apgar score low [None]
  - Bradycardia neonatal [None]
  - Cyanosis neonatal [None]
  - Adjustment disorder [None]
